FAERS Safety Report 9551644 (Version 1)
Quarter: 2013Q3

REPORT INFORMATION
  Report Type: Spontaneous
  Country: US (occurrence: None)
  Receive Date: 20130923
  Receipt Date: 20130923
  Transmission Date: 20140515
  Serious: Yes (Hospitalization)
  Sender: FDA-Public Use
  Company Number: None

PATIENT
  Age: 57 Year
  Sex: Female

DRUGS (3)
  1. PEGASYS 180 MCG/0.5 ML PFS 4X 0.5 ML KIT [Suspect]
     Indication: CHRONIC HEPATITIS C
     Dosage: INJECT 180 MCG UNDER THE SKIN ONCE A WEEK
     Dates: start: 20130605, end: 20130909
  2. RIBAVIRIN [Concomitant]
  3. INCIVEK [Concomitant]

REACTIONS (3)
  - Platelet count decreased [None]
  - Blood calcium decreased [None]
  - Anaemia [None]
